FAERS Safety Report 8202847-2 (Version None)
Quarter: 2012Q1

REPORT INFORMATION
  Report Type: 
  Country: None (occurrence: None)
  Receive Date: 20120312
  Receipt Date: 20120312
  Transmission Date: 20120608
  Serious: Yes (Hospitalization, Disabling)
  Sender: FDA-Public Use
  Company Number: None

PATIENT
  Age: 73 Year
  Sex: Male
  Weight: 104.32 kg

DRUGS (2)
  1. PRADAXA [Concomitant]
     Dosage: 150 MG
     Route: 048
     Dates: start: 20120103, end: 20120122
  2. PRADAXA [Suspect]
     Indication: THROMBOSIS PROPHYLAXIS
     Dosage: 150 MG
     Route: 048
     Dates: start: 20120103, end: 20120122

REACTIONS (1)
  - LARGE INTESTINAL HAEMORRHAGE [None]
